FAERS Safety Report 4801213-7 (Version None)
Quarter: 2005Q4

REPORT INFORMATION
  Report Type: 
  Country: None (occurrence: None)
  Receive Date: 20051011
  Receipt Date: 20050930
  Transmission Date: 20060501
  Serious: Yes (Hospitalization)
  Sender: FDA-Public Use
  Company Number: 2004-05-1094

PATIENT
  Age: 66 Year
  Sex: Male

DRUGS (13)
  1. REBETOL [Suspect]
     Indication: HEPATITIS C
     Dosage: SEE IMAGE
     Route: 048
     Dates: start: 20020826, end: 20021018
  2. REBETOL [Suspect]
     Indication: HEPATITIS C
     Dosage: SEE IMAGE
     Route: 048
     Dates: start: 20020826, end: 20030115
  3. REBETOL [Suspect]
     Indication: HEPATITIS C
     Dosage: SEE IMAGE
     Route: 048
     Dates: start: 20021019, end: 20030115
  4. INTRON A [Suspect]
     Indication: HEPATITIS C
     Dosage: SEE IMAGE
     Route: 030
     Dates: start: 20020826, end: 20020907
  5. INTRON A [Suspect]
     Indication: HEPATITIS C
     Dosage: SEE IMAGE
     Route: 030
     Dates: start: 20020826, end: 20030227
  6. INTRON A [Suspect]
     Indication: HEPATITIS C
     Dosage: SEE IMAGE
     Route: 030
     Dates: start: 20020909, end: 20030227
  7. TEGRETOL-XR [Concomitant]
  8. SELBEX [Concomitant]
  9. VALERIN TABLETS [Concomitant]
  10. FELODIPINE TABLETS [Concomitant]
  11. MAGNESIUM HYDROXIDE TABLETS [Concomitant]
  12. DIOVAN TABLETS [Concomitant]
  13. ZONISAMIDE TABLETS [Concomitant]

REACTIONS (4)
  - ANAEMIA [None]
  - MONOCYTE COUNT INCREASED [None]
  - NASOPHARYNGITIS [None]
  - WHITE BLOOD CELL COUNT DECREASED [None]
